FAERS Safety Report 8845162 (Version 2)
Quarter: 2012Q4

REPORT INFORMATION
  Report Type: 
  Country: JP (occurrence: JP)
  Receive Date: 20121017
  Receipt Date: 20121102
  Transmission Date: 20130627
  Serious: Yes (Hospitalization)
  Sender: FDA-Public Use
  Company Number: JP-OTSUKA-JP-2012-16239

PATIENT
  Age: 85 Year
  Sex: Female

DRUGS (10)
  1. SAMSCA [Suspect]
     Indication: CARDIAC FAILURE
     Dosage: 7.5 Mg milligram(s), qam
     Route: 048
     Dates: start: 20120628, end: 20120822
  2. ALLOPURINOLO [Concomitant]
     Indication: HYPERURICAEMIA
     Dosage: 100 Mg milligram(s), qam
     Route: 048
  3. MEVALOTIN [Concomitant]
     Indication: HYPERLIPIDAEMIA
     Dosage: 10 Mg milligram(s), bid
     Route: 048
  4. MUCOSTA [Concomitant]
     Indication: GASTRITIS
     Dosage: 100 Mg milligram(s), bid
     Route: 048
  5. AMLODIN [Concomitant]
     Indication: HYPERTENSION
     Dosage: 25 Mg milligram(s), bid
     Route: 048
  6. EQUA [Concomitant]
     Indication: DIABETES MELLITUS
     Dosage: 50 Mg milligram(s), bid
     Route: 048
  7. MICARDIS [Concomitant]
     Indication: HYPERTENSION
     Dosage: 40 Mg milligram(s), qam
     Route: 048
  8. EPADEL-S [Concomitant]
     Indication: HYPERTRIGLYCERIDAEMIA
     Dosage: 900 Mg milligram(s), qpm
     Route: 048
  9. DIART [Concomitant]
     Indication: CARDIAC FAILURE
     Dosage: 30 Mg milligram(s), qam
     Route: 048
  10. APORASNON [Concomitant]
     Indication: CARDIAC FAILURE
     Dosage: 25 Mg milligram(s), qam
     Route: 048

REACTIONS (4)
  - Cerebral infarction [Recovered/Resolved]
  - Clonic convulsion [Unknown]
  - Subdural haematoma [Unknown]
  - Dehydration [Recovered/Resolved]
